FAERS Safety Report 9449925 (Version 2)
Quarter: 2013Q3

REPORT INFORMATION
  Report Type: Spontaneous
  Country: GB (occurrence: GB)
  Receive Date: 20130809
  Receipt Date: 20130821
  Transmission Date: 20140515
  Serious: Yes (Disabling)
  Sender: FDA-Public Use
  Company Number: GB-SANOFI-AVENTIS-2013SA077475

PATIENT
  Age: 66 Year
  Sex: Male

DRUGS (7)
  1. ZALTRAP [Suspect]
     Indication: COLORECTAL CANCER
     Route: 065
     Dates: start: 20130605
  2. ZALTRAP [Suspect]
     Indication: COLORECTAL CANCER
     Route: 065
  3. IRINOTECAN [Concomitant]
  4. FLUOROURACIL [Concomitant]
     Dosage: BOLUS AND PUMP
  5. FOLINIC ACID [Concomitant]
  6. OMEPRAZOLE [Concomitant]
  7. RAMIPRIL [Concomitant]

REACTIONS (5)
  - Pulmonary fibrosis [Not Recovered/Not Resolved]
  - Throat tightness [Not Recovered/Not Resolved]
  - Dysphagia [Not Recovered/Not Resolved]
  - Oral discomfort [Not Recovered/Not Resolved]
  - Oral pain [Not Recovered/Not Resolved]
